FAERS Safety Report 7682317-0 (Version None)
Quarter: 2011Q3

REPORT INFORMATION
  Report Type: 
  Country: None (occurrence: None)
  Receive Date: 20110805
  Receipt Date: 20110729
  Transmission Date: 20111222
  Serious: Yes (Hospitalization)
  Sender: FDA-Public Use
  Company Number: 2011SP025841

PATIENT
  Age: 73 Year
  Sex: Male
  Weight: 83 kg

DRUGS (8)
  1. REBETOL [Suspect]
     Indication: HEPATITIS C
     Dosage: 1200 MG, QD, PO
     Route: 048
     Dates: end: 20110728
  2. REBETOL [Suspect]
     Indication: HEPATITIS C
     Dosage: 1200 MG, QD, PO
     Route: 048
     Dates: start: 20110406, end: 20110531
  3. BOCEPREVIR (SCH-503034) [Suspect]
     Indication: HEPATITIS C
     Dosage: 800 MG, TID, PO
     Route: 048
     Dates: start: 20110507, end: 20110728
  4. VIRAFERONPEG [Suspect]
     Indication: HEPATITIS C
     Dosage: 120 MCG, QW, SC
     Route: 058
     Dates: start: 20110406, end: 20110728
  5. CITALOPRAM HYDROBROMIDE [Concomitant]
  6. ALDACTONE [Concomitant]
  7. LEVOTHYROXINE SODIUM [Concomitant]
  8. PROPRANOLOL [Concomitant]

REACTIONS (11)
  - PYELONEPHRITIS ACUTE [None]
  - ASCITES [None]
  - DECREASED APPETITE [None]
  - ANAEMIA MACROCYTIC [None]
  - HYPOTHYROIDISM [None]
  - DIARRHOEA [None]
  - PYREXIA [None]
  - DISORIENTATION [None]
  - HAEMOLYTIC ANAEMIA [None]
  - HEPATIC ENCEPHALOPATHY [None]
  - ASTHENIA [None]
